FAERS Safety Report 8423744-3 (Version None)
Quarter: 2012Q2

REPORT INFORMATION
  Report Type: 
  Country: None (occurrence: None)
  Receive Date: 20120608
  Receipt Date: 20111202
  Transmission Date: 20120825
  Serious: No
  Sender: FDA-Public Use
  Company Number: US-ASTRAZENECA-2011SE73417

PATIENT
  Sex: Female

DRUGS (3)
  1. ATACAND [Suspect]
     Route: 048
  2. NORVASC [Suspect]
  3. ATACAND [Suspect]
     Indication: HYPERTENSION
     Route: 048

REACTIONS (3)
  - TOOTH DISORDER [None]
  - DRUG INEFFECTIVE [None]
  - OVERDOSE [None]
